FAERS Safety Report 9639747 (Version 2)
Quarter: 2013Q4

REPORT INFORMATION
  Report Type: Report from Study
  Country: US (occurrence: US)
  Receive Date: 20131023
  Receipt Date: 20131023
  Transmission Date: 20140711
  Serious: Yes (Death)
  Sender: FDA-Public Use
  Company Number: US-ROCHE-1230128

PATIENT
  Age: 54 Year
  Sex: Male

DRUGS (24)
  1. AVASTIN [Suspect]
     Indication: CHOLANGIOCARCINOMA
     Route: 042
     Dates: end: 20120727
  2. AVASTIN [Suspect]
     Indication: HEPATIC CANCER METASTATIC
     Route: 065
     Dates: start: 20120813
  3. AVASTIN [Suspect]
     Route: 065
     Dates: start: 20120828
  4. AVASTIN [Suspect]
     Route: 065
     Dates: start: 20120910
  5. AVASTIN [Suspect]
     Route: 065
     Dates: start: 20120925
  6. AVASTIN [Suspect]
     Route: 065
     Dates: start: 20121023
  7. AVASTIN [Suspect]
     Route: 065
     Dates: start: 20121120
  8. AVASTIN [Suspect]
     Route: 065
     Dates: start: 20121204
  9. AVASTIN [Suspect]
     Route: 065
     Dates: start: 20130103
  10. AVASTIN [Suspect]
     Route: 065
     Dates: start: 20130117
  11. AVASTIN [Suspect]
     Route: 065
     Dates: start: 20130213
  12. AVASTIN [Suspect]
     Route: 065
     Dates: start: 20130306
  13. AVASTIN [Suspect]
     Route: 065
     Dates: start: 20130326
  14. AVASTIN [Suspect]
     Route: 065
     Dates: start: 20130416
  15. XELODA [Suspect]
     Indication: HEPATIC CANCER METASTATIC
     Route: 065
  16. CALCIUM GLUCONATE [Concomitant]
     Route: 065
  17. FOSAPREPITANT [Concomitant]
     Route: 065
  18. GEMCITABINE HCL [Concomitant]
     Indication: CHOLANGIOCARCINOMA
     Route: 042
     Dates: end: 20130213
  19. DEXAMETHASONE [Concomitant]
     Route: 065
     Dates: end: 20130213
  20. OXALIPLATIN [Concomitant]
     Indication: CHOLANGIOCARCINOMA
     Route: 042
     Dates: end: 20130213
  21. HEPARIN LOCK FLUSH [Concomitant]
     Route: 042
     Dates: end: 20130213
  22. PALONOSETRON HYDROCHLORIDE [Concomitant]
  23. NORMAL SALINE [Concomitant]
     Route: 065
  24. MAGNESIUM SULFATE [Concomitant]

REACTIONS (10)
  - Neoplasm malignant [Fatal]
  - Drug ineffective [Unknown]
  - Hepatic enzyme increased [Not Recovered/Not Resolved]
  - Platelet count decreased [Not Recovered/Not Resolved]
  - Red cell distribution width increased [Not Recovered/Not Resolved]
  - Pain [Recovered/Resolved]
  - Tachycardia [Unknown]
  - Fatigue [Unknown]
  - Pain [Unknown]
  - Poor quality sleep [Unknown]
